FAERS Safety Report 4881790-0 (Version None)
Quarter: 2006Q1

REPORT INFORMATION
  Report Type: 
  Country: None (occurrence: None)
  Receive Date: 20060112
  Receipt Date: 20060112
  Transmission Date: 20060701
  Serious: Yes (Hospitalization)
  Sender: FDA-Public Use
  Company Number: None

PATIENT
  Age: 41 Year
  Sex: Male
  Weight: 98.7 kg

DRUGS (2)
  1. PHENYTOIN [Suspect]
     Indication: CONVULSION
     Dosage: 500MG  AM + HS PO
     Route: 048
  2. PHENOBARBITAL TAB [Suspect]
     Indication: CONVULSION
     Dosage: 64MG QD PO
     Route: 048

REACTIONS (7)
  - CONDITION AGGRAVATED [None]
  - CONVULSION [None]
  - DEPRESSION [None]
  - DRUG WITHDRAWAL SYNDROME [None]
  - HEADACHE [None]
  - IMPAIRED DRIVING ABILITY [None]
  - TREATMENT NONCOMPLIANCE [None]
